FAERS Safety Report 7818736-9 (Version None)
Quarter: 2011Q4

REPORT INFORMATION
  Report Type: 
  Country: None (occurrence: None)
  Receive Date: 20111018
  Receipt Date: 20111005
  Transmission Date: 20120403
  Serious: No
  Sender: FDA-Public Use
  Company Number: US-BIOGENIDEC-2011BI037883

PATIENT
  Sex: Female

DRUGS (1)
  1. TYSABRI [Suspect]
     Indication: MULTIPLE SCLEROSIS
     Route: 042
     Dates: start: 20110622, end: 20110915

REACTIONS (7)
  - THINKING ABNORMAL [None]
  - DYSPNOEA [None]
  - DELUSION [None]
  - ANXIETY [None]
  - NAUSEA [None]
  - ASTHENIA [None]
  - MALAISE [None]
